FAERS Safety Report 9753328 (Version 2)
Quarter: 2013Q4

REPORT INFORMATION
  Report Type: Spontaneous
  Country: US (occurrence: US)
  Receive Date: 20131213
  Receipt Date: 20131213
  Transmission Date: 20140711
  Serious: No
  Sender: FDA-Public Use
  Company Number: US-GILEAD-2010-0026801

PATIENT
  Sex: Female

DRUGS (13)
  1. LETAIRIS [Suspect]
     Indication: PULMONARY ARTERIAL HYPERTENSION
  2. REVATIO [Concomitant]
  3. LASIX [Concomitant]
  4. ALDACTONE [Concomitant]
  5. DIGOXIN [Concomitant]
  6. LISINOPRIL [Concomitant]
  7. METOPROLOL [Concomitant]
  8. NIFEDIPINE [Concomitant]
  9. AMITRIPTYLINE [Concomitant]
  10. PREDNISON [Concomitant]
  11. ASPIRIN [Concomitant]
  12. NEXIUM [Concomitant]
  13. NASAL SPARY [Concomitant]

REACTIONS (1)
  - Liver function test abnormal [Unknown]
